FAERS Safety Report 8917882 (Version 1)
Quarter: 2012Q4

REPORT INFORMATION
  Report Type: 
  Country: US (occurrence: US)
  Receive Date: 20121120
  Receipt Date: 20121120
  Transmission Date: 20130627
  Serious: No
  Sender: FDA-Public Use
  Company Number: US-ASTRAZENECA-2012SE15391

PATIENT
  Age: 64 Year
  Sex: Female

DRUGS (2)
  1. NEXIUM [Suspect]
     Dosage: ONE CAPSULE DAILY
     Route: 048
  2. FOSOMAX [Concomitant]

REACTIONS (6)
  - Diverticulitis [Unknown]
  - Rectal fissure [Unknown]
  - Osteoporosis [Unknown]
  - Faecal incontinence [Unknown]
  - Diarrhoea [Unknown]
  - Incorrect dose administered [Unknown]
